FAERS Safety Report 8459136-0 (Version None)
Quarter: 2012Q2

REPORT INFORMATION
  Report Type: 
  Country: None (occurrence: None)
  Receive Date: 20120622
  Receipt Date: 20120620
  Transmission Date: 20120825
  Serious: Yes (Life-Threatening, Hospitalization)
  Sender: FDA-Public Use
  Company Number: MX-B.I. PHARMACEUTICALS,INC./RIDGEFIELD-2012-MX-00184MX

PATIENT
  Age: 75 Year
  Sex: Female

DRUGS (4)
  1. RANTUDIL [Concomitant]
     Indication: ANTIINFLAMMATORY THERAPY
     Dosage: 180 MG
     Route: 048
     Dates: start: 20120607
  2. OMEPRAZOLE [Concomitant]
     Indication: GASTRITIS PROPHYLAXIS
     Dosage: 20 MG
     Route: 048
     Dates: start: 20120607
  3. ACETAMINOPHEN [Concomitant]
     Indication: ANALGESIC THERAPY
     Dosage: 1500 MG
     Route: 048
     Dates: start: 20120607, end: 20120614
  4. DABIGATRAN ETEXILATE [Suspect]
     Indication: THROMBOSIS PROPHYLAXIS
     Dosage: 110 MG
     Route: 048
     Dates: start: 20120607

REACTIONS (1)
  - ACUTE MYOCARDIAL INFARCTION [None]
